FAERS Safety Report 10520874 (Version 1)
Quarter: 2014Q4

REPORT INFORMATION
  Report Type: Report from Study
  Country: GB (occurrence: GB)
  Receive Date: 20141016
  Receipt Date: 20141016
  Transmission Date: 20150528
  Serious: Yes (Hospitalization)
  Sender: FDA-Public Use
  Company Number: GB-ABBVIE-14K-167-1295038-00

PATIENT
  Age: 37 Year
  Sex: Male
  Weight: 127 kg

DRUGS (1)
  1. HUMIRA [Suspect]
     Active Substance: ADALIMUMAB
     Indication: PSORIASIS
     Route: 058
     Dates: start: 20091113, end: 20100201

REACTIONS (2)
  - Road traffic accident [Unknown]
  - Humerus fracture [Unknown]

NARRATIVE: CASE EVENT DATE: 20101220
